FAERS Safety Report 9487154 (Version 2)
Quarter: 2013Q3

REPORT INFORMATION
  Report Type: Spontaneous
  Country: AR (occurrence: AR)
  Receive Date: 20130829
  Receipt Date: 20130918
  Transmission Date: 20140515
  Serious: Yes (Other)
  Sender: FDA-Public Use
  Company Number: AR-AMGEN-ARGSP2013060878

PATIENT
  Age: 33 Year
  Sex: Female

DRUGS (3)
  1. ENBREL [Suspect]
     Indication: RHEUMATOID ARTHRITIS
     Dosage: 50 MG, WEEKLY
     Route: 058
     Dates: start: 20071103
  2. SULFASALAZINE [Concomitant]
     Dosage: UNK
  3. AZACORTID [Concomitant]
     Dosage: UNK

REACTIONS (3)
  - Accident at work [Recovering/Resolving]
  - Ankle fracture [Recovering/Resolving]
  - Upper limb fracture [Recovering/Resolving]
